FAERS Safety Report 20001480 (Version 3)
Quarter: 2021Q4

REPORT INFORMATION
  Report Type: Spontaneous
  Country: GB (occurrence: GB)
  Receive Date: 20211027
  Receipt Date: 20211118
  Transmission Date: 20220303
  Serious: Yes (Death)
  Sender: FDA-Public Use
  Company Number: GB-CELGENE-GBR-20211007030

PATIENT
  Age: 8 Decade
  Sex: Female

DRUGS (9)
  1. REVLIMID [Suspect]
     Active Substance: LENALIDOMIDE
     Indication: Product used for unknown indication
     Dosage: 10 MILLIGRAM
     Route: 048
  2. REVLIMID [Suspect]
     Active Substance: LENALIDOMIDE
     Dosage: 5 MILLIGRAM
     Route: 048
  3. SENNA [Suspect]
     Active Substance: SENNA LEAF\SENNOSIDES\SENNOSIDES A AND B
     Indication: Product used for unknown indication
     Dosage: 7.5 MILLIGRAM
     Route: 065
  4. NINLARO [Suspect]
     Active Substance: IXAZOMIB CITRATE
     Indication: Product used for unknown indication
     Route: 065
  5. NINLARO [Suspect]
     Active Substance: IXAZOMIB CITRATE
     Route: 065
  6. DEXAMETHASONE [Suspect]
     Active Substance: DEXAMETHASONE
     Indication: Product used for unknown indication
     Route: 065
  7. DEXAMETHASONE [Suspect]
     Active Substance: DEXAMETHASONE
     Route: 065
  8. ASPIRIN [Concomitant]
     Active Substance: ASPIRIN
     Indication: Product used for unknown indication
     Dosage: 75 MILLIGRAM
     Route: 065
  9. ACYCLOVIR [Concomitant]
     Active Substance: ACYCLOVIR
     Indication: Product used for unknown indication
     Dosage: 200 MILLIGRAM
     Route: 065

REACTIONS (2)
  - Death [Fatal]
  - Product dose omission issue [Unknown]
